FAERS Safety Report 22036094 (Version 1)
Quarter: 2023Q1

REPORT INFORMATION
  Report Type: Spontaneous
  Country: US (occurrence: US)
  Receive Date: 20230224
  Receipt Date: 20230224
  Transmission Date: 20230417
  Serious: Yes (Other)
  Sender: FDA-Public Use
  Company Number: US-RK PHARMA, INC-20230200008

PATIENT

DRUGS (2)
  1. MITOMYCIN [Suspect]
     Active Substance: MITOMYCIN
     Indication: Chemotherapy
     Route: 061
  2. INTERFERON [Concomitant]
     Active Substance: INTERFERON
     Indication: Chemotherapy
     Route: 061

REACTIONS (1)
  - Scleromalacia [Recovered/Resolved]
